FAERS Safety Report 5679303-9 (Version None)
Quarter: 2008Q1

REPORT INFORMATION
  Report Type: 
  Country: None (occurrence: None)
  Receive Date: 20080325
  Receipt Date: 20080314
  Transmission Date: 20080703
  Serious: Yes (Disabling)
  Sender: FDA-Public Use
  Company Number: AUWYE728425MAY07

PATIENT
  Sex: Female
  Weight: 60 kg

DRUGS (4)
  1. EFFEXOR XR [Suspect]
     Route: 048
     Dates: start: 20060517, end: 20060530
  2. EFFEXOR XR [Suspect]
     Route: 048
     Dates: start: 20060531, end: 20060623
  3. KAPANOL [Concomitant]
     Dosage: TWO 10MG TABLETS (20MG) PER WEEK
     Route: 048
  4. ACETAMINOPHEN W/ CODEINE [Concomitant]
     Indication: ARTHRALGIA
     Dosage: 4 TABLETS PER WEEK
     Route: 048

REACTIONS (6)
  - BURNING SENSATION [None]
  - FEELING HOT [None]
  - HYPERHIDROSIS [None]
  - HYPOAESTHESIA [None]
  - PARAESTHESIA [None]
  - PARKINSON'S DISEASE [None]
